FAERS Safety Report 6669338-1 (Version None)
Quarter: 2010Q2

REPORT INFORMATION
  Report Type: 
  Country: None (occurrence: None)
  Receive Date: 20100406
  Receipt Date: 20100402
  Transmission Date: 20101027
  Serious: Yes (Hospitalization)
  Sender: FDA-Public Use
  Company Number: A0801481A

PATIENT
  Age: 58 Year
  Sex: Male
  Weight: 83.2 kg

DRUGS (6)
  1. AVANDIA [Suspect]
     Indication: DIABETES MELLITUS
     Dosage: 8MG PER DAY
     Route: 048
     Dates: start: 20020212, end: 20030101
  2. ASPIRIN [Concomitant]
  3. GLYBURIDE [Concomitant]
  4. ATENOLOL [Concomitant]
  5. DILTIAZEM HCL [Concomitant]
  6. GEMFIBROZIL [Concomitant]

REACTIONS (2)
  - HEART INJURY [None]
  - ISCHAEMIC STROKE [None]
